FAERS Safety Report 11272243 (Version 1)
Quarter: 2015Q3

REPORT INFORMATION
  Report Type: Spontaneous
  Country: US (occurrence: None)
  Receive Date: 20150713
  Receipt Date: 20150713
  Transmission Date: 20151125
  Serious: Yes (Life-Threatening, Hospitalization, Disabling)
  Sender: FDA-Public Use
  Company Number: None

PATIENT
  Age: 65 Year
  Sex: Male
  Weight: 96.16 kg

DRUGS (11)
  1. MAGNESIUM [Concomitant]
     Active Substance: MAGNESIUM
  2. COQ10 [Concomitant]
     Active Substance: UBIDECARENONE
  3. OMEGA 3 FATTY ACIDS [Concomitant]
     Active Substance: OMEGA-3 FATTY ACIDS
  4. FLAXSEED [Concomitant]
     Active Substance: FLAX SEED
  5. SEPTRA [Suspect]
     Active Substance: SULFAMETHOXAZOLE\TRIMETHOPRIM
     Indication: CELLULITIS
     Route: 048
  6. TESTOSTERONE. [Concomitant]
     Active Substance: TESTOSTERONE
  7. MVM [Concomitant]
  8. HYTRIN [Concomitant]
     Active Substance: TERAZOSIN HYDROCHLORIDE
  9. CYPIONATE [Concomitant]
     Active Substance: ESTRADIOL CYPIONATE
  10. VITAMINS C,D + E [Concomitant]
  11. PROTANDIM [Concomitant]
     Active Substance: DIETARY SUPPLEMENT

REACTIONS (3)
  - Faeces discoloured [None]
  - Anaemia [None]
  - Haematemesis [None]

NARRATIVE: CASE EVENT DATE: 20150703
